FAERS Safety Report 8497998-1 (Version None)
Quarter: 2012Q3

REPORT INFORMATION
  Report Type: 
  Country: None (occurrence: None)
  Receive Date: 20120709
  Receipt Date: 20120618
  Transmission Date: 20120928
  Serious: Yes (Hospitalization)
  Sender: FDA-Public Use
  Company Number: US-AMGEN-USASP2012037958

PATIENT
  Age: 53 Year
  Sex: Female
  Weight: 81.633 kg

DRUGS (9)
  1. ENBREL [Suspect]
     Indication: ANKYLOSING SPONDYLITIS
     Dosage: UNK
     Dates: start: 20120101
  2. ESTRADIOL [Concomitant]
     Dosage: UNK
  3. HUMIRA [Suspect]
     Dosage: 40 MG, Q2WK
     Dates: start: 20120101, end: 20120101
  4. MULTIPLE VITAMINS [Concomitant]
     Dosage: UNK
  5. SERTRALINE HYDROCHLORIDE [Concomitant]
     Dosage: UNK
  6. CETIRIZINE HYDROCHLORIDE [Concomitant]
     Dosage: UNK
  7. OXYBUTYNIN [Concomitant]
     Dosage: UNK
  8. HUMIRA [Suspect]
     Indication: ANKYLOSING SPONDYLITIS
     Dosage: 40 MG, Q2WK
     Dates: start: 20120510
  9. FLUTICASONE PROPIONATE [Concomitant]
     Dosage: UNK

REACTIONS (3)
  - INJECTION SITE REACTION [None]
  - INJECTION SITE ERYTHEMA [None]
  - PNEUMONIA [None]
